FAERS Safety Report 16710693 (Version 1)
Quarter: 2019Q3

REPORT INFORMATION
  Report Type: Report from Study
  Country: US (occurrence: US)
  Receive Date: 20190816
  Receipt Date: 20190816
  Transmission Date: 20191004
  Serious: Yes (Other)
  Sender: FDA-Public Use
  Company Number: US-ASTRAZENECA-2019SF15113

PATIENT
  Age: 71 Year
  Sex: Female

DRUGS (4)
  1. LYNPARZA [Suspect]
     Active Substance: OLAPARIB
     Indication: BREAST CANCER FEMALE
     Route: 048
     Dates: start: 201801
  2. LOSARTAN. [Concomitant]
     Active Substance: LOSARTAN
  3. CARVEDILOL. [Concomitant]
     Active Substance: CARVEDILOL
  4. HCTZ [Concomitant]
     Active Substance: HYDROCHLOROTHIAZIDE

REACTIONS (4)
  - Malignant neoplasm progression [Unknown]
  - Back disorder [Unknown]
  - Pain [Unknown]
  - Pelvic mass [Unknown]
